FAERS Safety Report 9737628 (Version 1)
Quarter: 2013Q4

REPORT INFORMATION
  Report Type: Spontaneous
  Country: US (occurrence: US)
  Receive Date: 20131208
  Receipt Date: 20131208
  Transmission Date: 20140711
  Serious: No
  Sender: FDA-Public Use
  Company Number: US-SANOFI-AVENTIS-2013SA093552

PATIENT
  Sex: 0

DRUGS (1)
  1. RENVELA [Suspect]
     Indication: RENAL DISORDER
     Route: 048

REACTIONS (2)
  - Headache [Not Recovered/Not Resolved]
  - Constipation [Not Recovered/Not Resolved]
